FAERS Safety Report 21837160 (Version 1)
Quarter: 2023Q1

REPORT INFORMATION
  Report Type: Spontaneous
  Country: US (occurrence: US)
  Receive Date: 20230109
  Receipt Date: 20230109
  Transmission Date: 20230418
  Serious: Yes (Other)
  Sender: FDA-Public Use
  Company Number: US-GLAXOSMITHKLINE-US2023AMR001016

PATIENT

DRUGS (1)
  1. BENLYSTA [Suspect]
     Active Substance: BELIMUMAB
     Indication: Systemic lupus erythematosus
     Dosage: 400 MG, 800MG OVER 1 HOUR ON WEEK 0, 2,4 AND THEN EVERY 4 WEEKS VIA PIV AND GRAVITY
     Route: 042

REACTIONS (7)
  - Urinary retention [Unknown]
  - Renal failure [Unknown]
  - Dizziness [Unknown]
  - Blood pressure increased [Unknown]
  - Bedridden [Unknown]
  - Mobility decreased [Unknown]
  - Bladder disorder [Unknown]
